FAERS Safety Report 8445412-4 (Version None)
Quarter: 2012Q2

REPORT INFORMATION
  Report Type: 
  Country: None (occurrence: None)
  Receive Date: 20120618
  Receipt Date: 20120612
  Transmission Date: 20120825
  Serious: No
  Sender: FDA-Public Use
  Company Number: US-PFIZER INC-2012141594

PATIENT
  Sex: Female

DRUGS (1)
  1. LYRICA [Suspect]
     Dosage: 50 MG, (1 IN AM, 2 IN PM)

REACTIONS (3)
  - PAIN [None]
  - INSOMNIA [None]
  - MUSCULOSKELETAL PAIN [None]
